FAERS Safety Report 17742763 (Version 2)
Quarter: 2020Q2

REPORT INFORMATION
  Report Type: Report from Study
  Country: US (occurrence: US)
  Receive Date: 20200505
  Receipt Date: 20200616
  Transmission Date: 20200714
  Serious: Yes (Hospitalization, Other)
  Sender: FDA-Public Use
  Company Number: US-BRISTOL-MYERS SQUIBB COMPANY-BMS-2020-034555

PATIENT
  Age: 58 Year
  Sex: Female
  Weight: 69.4 kg

DRUGS (2)
  1. NIVOLUMAB [Suspect]
     Active Substance: NIVOLUMAB
     Indication: GALLBLADDER ADENOCARCINOMA
     Dosage: 240 MILLIGRAM, Q4WK
     Route: 042
     Dates: start: 20200113
  2. RUCAPARIB [Suspect]
     Active Substance: RUCAPARIB
     Indication: GALLBLADDER ADENOCARCINOMA
     Dosage: 400 MILLIGRAM, Q4WK
     Route: 048
     Dates: start: 20200113

REACTIONS (1)
  - Febrile neutropenia [Recovered/Resolved]

NARRATIVE: CASE EVENT DATE: 20200426
